FAERS Safety Report 5059863-1 (Version None)
Quarter: 2006Q3

REPORT INFORMATION
  Report Type: 
  Country: None (occurrence: None)
  Receive Date: 20060724
  Receipt Date: 20060622
  Transmission Date: 20061208
  Serious: Yes (Other)
  Sender: FDA-Public Use
  Company Number: PHHO2006DE10204

PATIENT
  Age: 44 Year
  Sex: Female
  Weight: 66 kg

DRUGS (2)
  1. VAL +/- HCTZ VS AMLODIPINE +/- HCTZ [Suspect]
     Indication: HYPERTENSION
     Dosage: LEVEL 1
     Route: 048
     Dates: start: 20060524
  2. CONTRACEPTIVES UNS [Concomitant]

REACTIONS (7)
  - ANGINA PECTORIS [None]
  - DIZZINESS [None]
  - ELECTROCARDIOGRAM ST SEGMENT DEPRESSION [None]
  - MYOCARDITIS [None]
  - PERICARDIAL EFFUSION [None]
  - PERICARDITIS [None]
  - TACHYCARDIA [None]
